FAERS Safety Report 4289092-0 (Version None)
Quarter: 2004Q1

REPORT INFORMATION
  Report Type: 
  Country: None (occurrence: None)
  Receive Date: 20040126
  Receipt Date: 20030828
  Transmission Date: 20041129
  Serious: No
  Sender: FDA-Public Use
  Company Number: USA030331505

PATIENT
  Age: 84 Year
  Sex: Female
  Weight: 48 kg

DRUGS (1)
  1. FORTEO [Suspect]
     Indication: OSTEOPOROSIS
     Dosage: 20 UG

REACTIONS (5)
  - ARTHRALGIA [None]
  - GINGIVAL INFECTION [None]
  - INJECTION SITE BURNING [None]
  - MEDICATION ERROR [None]
  - OVERDOSE [None]
